FAERS Safety Report 7152585-2 (Version None)
Quarter: 2010Q4

REPORT INFORMATION
  Report Type: 
  Country: None (occurrence: None)
  Receive Date: 20101213
  Receipt Date: 20101115
  Transmission Date: 20110411
  Serious: Yes (Hospitalization)
  Sender: FDA-Public Use
  Company Number: JP-AMGEN-JPNSP2010006299

PATIENT

DRUGS (16)
  1. ENBREL [Suspect]
     Indication: RHEUMATOID ARTHRITIS
     Dosage: 25 MG, 2X/WEEK (POWDER AND SOLVENT FOR INJECTION)
     Dates: start: 20071115, end: 20080318
  2. ENBREL [Suspect]
     Dosage: 25 MG, 1X/WEEK
     Dates: start: 20080701, end: 20100921
  3. METHOTREXATE [Suspect]
     Indication: RHEUMATOID ARTHRITIS
     Dosage: 2 MG, 3X/WEEK
     Route: 048
     Dates: start: 20060914, end: 20100923
  4. METHOTREXATE [Suspect]
     Dosage: 2 MG, UNK
     Route: 048
  5. PREDNISOLONE [Concomitant]
     Indication: RHEUMATOID ARTHRITIS
     Dosage: 5 MG, 1X/DAY
     Route: 048
     Dates: start: 20050901
  6. PREDNISOLONE [Concomitant]
     Dosage: 4 MG, 1X/DAY
     Route: 048
     Dates: start: 20071211, end: 20071225
  7. PREDNISOLONE [Concomitant]
     Dosage: 3 MG, 1X/DAY
     Route: 048
     Dates: start: 20071226, end: 20080219
  8. PREDNISOLONE [Concomitant]
     Dosage: 2.5 MG, 1X/DAY
     Route: 048
     Dates: start: 20080220, end: 20080610
  9. PREDNISOLONE [Concomitant]
     Dosage: 2 MG, 1X/DAY
     Route: 048
     Dates: start: 20080611, end: 20090127
  10. PREDNISOLONE [Concomitant]
     Dosage: 2.5 MG, 2X/DAY
     Route: 048
     Dates: start: 20090128, end: 20090714
  11. PREDNISOLONE [Concomitant]
     Dosage: 2 MG, 2X/DAY
     Route: 048
     Dates: start: 20090715
  12. LOXOPROFEN SODIUM [Concomitant]
     Indication: RHEUMATOID ARTHRITIS
     Dosage: 60 MG, 2X/DAY
     Route: 048
     Dates: start: 20050901
  13. SELBEX [Concomitant]
     Indication: GASTRITIS PROPHYLAXIS
     Dosage: 50 MG, 2X/DAY
     Dates: start: 20050901
  14. ISONIAZID [Concomitant]
     Indication: ANTIBIOTIC PROPHYLAXIS
     Dosage: 300 MG, 1X/DAY
     Route: 048
     Dates: start: 20071126, end: 20080909
  15. HUSCODE [Concomitant]
     Indication: PYREXIA
     Dosage: 2 DFX3
     Route: 048
     Dates: start: 20100927, end: 20100930
  16. HUSCODE [Concomitant]
     Indication: COUGH

REACTIONS (3)
  - INTERSTITIAL LUNG DISEASE [None]
  - PNEUMOCYSTIS JIROVECI PNEUMONIA [None]
  - PULMONARY MASS [None]
